FAERS Safety Report 7705287-5 (Version None)
Quarter: 2011Q3

REPORT INFORMATION
  Report Type: 
  Country: None (occurrence: None)
  Receive Date: 20110818
  Receipt Date: 20110802
  Transmission Date: 20111222
  Serious: Yes (Hospitalization)
  Sender: FDA-Public Use
  Company Number: 2011MA010853

PATIENT
  Age: 79 Year
  Sex: Male

DRUGS (4)
  1. MIRTAZAPINE [Suspect]
     Indication: INSOMNIA
     Dosage: 30 MG; QD
  2. DONEPEZIL HCL [Suspect]
     Indication: DEMENTIA
     Dosage: 10 MG; QD
  3. VENLAFAXINE HCL EXTENDED-RELEASE [Suspect]
     Dosage: 225 MG; QD
  4. QUETIAPINE [Suspect]
     Indication: AGITATION
     Dosage: 12.5 MG; BID

REACTIONS (14)
  - SEROTONIN SYNDROME [None]
  - MYOCLONUS [None]
  - GAIT DISTURBANCE [None]
  - DEPRESSION [None]
  - HYPERREFLEXIA [None]
  - PSYCHOMOTOR RETARDATION [None]
  - AGITATION [None]
  - BLOOD SODIUM DECREASED [None]
  - HALLUCINATION, VISUAL [None]
  - SOCIAL AVOIDANT BEHAVIOUR [None]
  - CONFUSIONAL STATE [None]
  - FLUSHING [None]
  - ANAEMIA [None]
  - DELUSION [None]
